FAERS Safety Report 11937943 (Version 2)
Quarter: 2016Q2

REPORT INFORMATION
  Report Type: Spontaneous
  Country: US (occurrence: US)
  Receive Date: 20160122
  Receipt Date: 20160421
  Transmission Date: 20160815
  Serious: No
  Sender: FDA-Public Use
  Company Number: US-009507513-1601USA003010

PATIENT
  Age: 22 Year
  Sex: Female
  Weight: 134.24 kg

DRUGS (2)
  1. NEXPLANON [Suspect]
     Active Substance: ETONOGESTREL
     Indication: CONTRACEPTION
     Dosage: UNK
     Route: 059
     Dates: start: 20151218, end: 20160107
  2. NEXPLANON [Suspect]
     Active Substance: ETONOGESTREL
     Dosage: UNK
     Route: 059
     Dates: start: 20160113

REACTIONS (3)
  - Device expulsion [Recovered/Resolved]
  - Breast feeding [Unknown]
  - Implant site irritation [Not Recovered/Not Resolved]

NARRATIVE: CASE EVENT DATE: 201512
